FAERS Safety Report 17791617 (Version 1)
Quarter: 2020Q2

REPORT INFORMATION
  Report Type: Spontaneous
  Country: US (occurrence: US)
  Receive Date: 20200515
  Receipt Date: 20200515
  Transmission Date: 20200714
  Serious: No
  Sender: FDA-Public Use
  Company Number: None

PATIENT
  Age: 7 Year
  Sex: Female

DRUGS (10)
  1. MORPHINE 10MG/5ML [Concomitant]
  2. CETIRIZINE 1MG/ML [Concomitant]
  3. PULMICORT 0.5MG/2ML NEB [Concomitant]
  4. IBUPROFEN 100MG/5ML [Concomitant]
     Active Substance: IBUPROFEN
  5. LORAZEPAM 2MG/ML [Concomitant]
     Active Substance: LORAZEPAM
  6. GABAPENTIN 250MG/5ML [Concomitant]
  7. LANSOPRAZOLE ODT 15MG [Concomitant]
  8. BETHKIS [Suspect]
     Active Substance: TOBRAMYCIN
     Indication: PSEUDOMONAS TEST POSITIVE
     Route: 055
  9. ALBUTEROL 0.083% NEB [Concomitant]
  10. ATROVENT [Concomitant]
     Active Substance: IPRATROPIUM BROMIDE

REACTIONS (1)
  - Haemoptysis [None]

NARRATIVE: CASE EVENT DATE: 20200320
